FAERS Safety Report 7555026-6 (Version None)
Quarter: 2011Q2

REPORT INFORMATION
  Report Type: 
  Country: None (occurrence: None)
  Receive Date: 20110617
  Receipt Date: 20110613
  Transmission Date: 20111010
  Serious: Yes (Other)
  Sender: FDA-Public Use
  Company Number: IN-PFIZER INC-2011129891

PATIENT
  Age: 55 Year
  Sex: Female

DRUGS (2)
  1. PHENYTOIN [Suspect]
     Dosage: UNK
  2. VECURONIUM BROMIDE [Suspect]
     Dosage: 0.1MG, UNK

REACTIONS (2)
  - DRUG INTERACTION [None]
  - DRUG RESISTANCE [None]
